FAERS Safety Report 19450056 (Version 1)
Quarter: 2021Q2

REPORT INFORMATION
  Report Type: Spontaneous
  Country: US (occurrence: US)
  Receive Date: 20210622
  Receipt Date: 20210622
  Transmission Date: 20210717
  Serious: Yes (Other)
  Sender: FDA-Public Use
  Company Number: NVSC2021US140001

PATIENT
  Sex: Female

DRUGS (2)
  1. G?CSF [Concomitant]
     Active Substance: GRANULOCYTE COLONY-STIMULATING FACTOR NOS
     Indication: LEUKOCYTOSIS
     Dosage: UNK
     Route: 065
  2. NILOTINIB [Suspect]
     Active Substance: NILOTINIB
     Indication: CHRONIC MYELOID LEUKAEMIA
     Dosage: UNK
     Route: 065
     Dates: start: 20200717, end: 20210610

REACTIONS (6)
  - Cytopenia [Unknown]
  - Alopecia [Unknown]
  - Oedema [Unknown]
  - Diarrhoea [Unknown]
  - Fatigue [Unknown]
  - Drug intolerance [Unknown]
